FAERS Safety Report 10978922 (Version 1)
Quarter: 2015Q2

REPORT INFORMATION
  Report Type: Spontaneous
  Country: US (occurrence: US)
  Receive Date: 20150402
  Receipt Date: 20150402
  Transmission Date: 20150821
  Serious: Yes (Hospitalization, Other)
  Sender: FDA-Public Use
  Company Number: US-JNJFOC-20150320284

PATIENT
  Sex: Female

DRUGS (2)
  1. XARELTO [Suspect]
     Active Substance: RIVAROXABAN
     Indication: ANTIPHOSPHOLIPID SYNDROME
     Route: 048
  2. XARELTO [Suspect]
     Active Substance: RIVAROXABAN
     Indication: SJOGREN^S SYNDROME
     Route: 048

REACTIONS (7)
  - Chorea [Recovering/Resolving]
  - Pulmonary embolism [Recovering/Resolving]
  - Seizure [Recovering/Resolving]
  - Sjogren^s syndrome [Recovering/Resolving]
  - Medication error [Unknown]
  - Cognitive disorder [Recovering/Resolving]
  - Off label use [Unknown]
